FAERS Safety Report 5032769-X (Version None)
Quarter: 2006Q2

REPORT INFORMATION
  Report Type: 
  Country: None (occurrence: None)
  Receive Date: 20060620
  Receipt Date: 20060620
  Transmission Date: 20061013
  Serious: Yes (Life-Threatening, Hospitalization)
  Sender: FDA-Public Use
  Company Number: None

PATIENT
  Age: 59 Year
  Sex: Female
  Weight: 83 kg

DRUGS (13)
  1. CEFUROXIME [Suspect]
     Indication: ANTIBIOTIC PROPHYLAXIS
     Dosage: 1.5 GRAMS ONCE IV
     Route: 042
     Dates: start: 20050714, end: 20050714
  2. CEFUROXIME [Suspect]
     Indication: PREOPERATIVE CARE
     Dosage: 1.5 GRAMS ONCE IV
     Route: 042
     Dates: start: 20050714, end: 20050714
  3. PROPOFOL [Concomitant]
  4. ESOMOLOL [Concomitant]
  5. ETOMIDATE [Concomitant]
  6. FAMOTIDINE [Concomitant]
  7. LIDOCAINE [Concomitant]
  8. ROCURONIUM BROMIDE [Concomitant]
  9. FENTANYL [Concomitant]
  10. MIDAZOLAM [Concomitant]
  11. VENLAFAXINE HCL [Concomitant]
  12. FLUTICASONE PROPIONATE [Concomitant]
  13. LISINOPRIL AND HYDROCHLOROTHIAZIDE [Concomitant]

REACTIONS (4)
  - ANAPHYLACTIC REACTION [None]
  - HYPOTENSION [None]
  - PROCEDURAL COMPLICATION [None]
  - RESUSCITATION [None]
